FAERS Safety Report 11183988 (Version 1)
Quarter: 2015Q2

REPORT INFORMATION
  Report Type: Spontaneous
  Country: US (occurrence: None)
  Receive Date: 20150611
  Receipt Date: 20150611
  Transmission Date: 20150821
  Serious: Yes (Hospitalization)
  Sender: FDA-Public Use
  Company Number: None

PATIENT
  Age: 9 Year
  Sex: Female
  Weight: 28.8 kg

DRUGS (5)
  1. METHOTREXATE [Suspect]
     Active Substance: METHOTREXATE
     Dates: end: 20150529
  2. VINCRISTINE SULFATE. [Suspect]
     Active Substance: VINCRISTINE SULFATE
     Dates: end: 20150605
  3. CYTARABINE. [Suspect]
     Active Substance: CYTARABINE
     Dates: end: 20150521
  4. DEXAMETHASONE. [Suspect]
     Active Substance: DEXAMETHASONE
     Dates: end: 20150607
  5. ONCASPAR [Suspect]
     Active Substance: PEGASPARGASE
     Dates: end: 20150525

REACTIONS (19)
  - Respiratory failure [None]
  - Blood pressure increased [None]
  - Confusional state [None]
  - Abdominal pain [None]
  - Tachycardia [None]
  - Loss of consciousness [None]
  - Disseminated intravascular coagulation [None]
  - Infusion site haemorrhage [None]
  - Heart rate increased [None]
  - Abdominal distension [None]
  - Cardio-respiratory distress [None]
  - Septic shock [None]
  - Renal impairment [None]
  - Lethargy [None]
  - Vessel puncture site haemorrhage [None]
  - Enterovirus test positive [None]
  - Human rhinovirus test positive [None]
  - Ascites [None]
  - Paralysis [None]

NARRATIVE: CASE EVENT DATE: 20150608
